FAERS Safety Report 9287724 (Version 3)
Quarter: 2013Q3

REPORT INFORMATION
  Report Type: Spontaneous
  Country: GB (occurrence: GB)
  Receive Date: 20130514
  Receipt Date: 20130906
  Transmission Date: 20140515
  Serious: Yes (Hospitalization)
  Sender: FDA-Public Use
  Company Number: GB-009507513-1305GBR006612

PATIENT
  Age: 65 Year
  Sex: Female
  Weight: 60 kg

DRUGS (13)
  1. DEXAMETHASONE [Suspect]
     Indication: PLASMA CELL MYELOMA
     Dosage: 10 MG, 3 DOSAGE (ON WEEK 1, 2 AND 3)/4 WEEKS
     Route: 048
     Dates: start: 20130319, end: 20130407
  2. CAELYX [Suspect]
     Indication: PLASMA CELL MYELOMA
     Dosage: 14 MG, 4 DOSAGE (ON DAYS 1-4)/28 DAYS
     Route: 042
     Dates: start: 20130319
  3. VELCADE [Suspect]
     Indication: PLASMA CELL MYELOMA
     Dosage: 1.3 MG/M2, 4 DOSAGE (ON DAYS 1, 4, 8, 11)/28 DAYS
     Route: 058
     Dates: start: 20130319, end: 20130506
  4. ACYCLOVIR [Concomitant]
     Indication: PROPHYLAXIS
     Dosage: 800 MG, 2 DOSAGE/1 DAY
     Route: 048
  5. ALLOPURINOL [Concomitant]
     Indication: PROPHYLAXIS
     Dosage: 300 MG,1 DOSAGE/1 DAY
     Route: 048
  6. CITALOPRAM [Concomitant]
     Indication: DEPRESSION
     Dosage: 20 MG, 1 DOSAGE/1 DAY
     Route: 048
  7. SULFAMETHOXAZOLE (+) TRIMETHOPRIM [Concomitant]
     Indication: PROPHYLAXIS
     Dosage: 480 MG, 1 DOSAGE/1 DAY
     Route: 048
  8. DIAZEPAM [Concomitant]
     Indication: DEPRESSION
     Dosage: 3 MG, 3 DOSAGE/1 DAY
     Route: 048
  9. FLUCONAZOLE [Concomitant]
     Indication: PROPHYLAXIS
     Dosage: 50 MG, 1 DOSAGE/1 DAY
     Route: 048
  10. LANSOPRAZOLE [Concomitant]
     Indication: ANTACID THERAPY
     Dosage: 30 MG, 1 DOSAGE/1 DAY
     Route: 048
  11. MAXOLON [Concomitant]
     Indication: PROPHYLAXIS OF NAUSEA AND VOMITING
     Dosage: 30 MG, 3 DOSAGE/1 DAY
     Route: 048
  12. VENTOLIN (ALBUTEROL) [Concomitant]
     Indication: CHRONIC OBSTRUCTIVE PULMONARY DISEASE
     Dosage: 4 DOSAGE/1 DAY
     Route: 055
  13. VENTOLIN (ALBUTEROL SULFATE) [Concomitant]
     Indication: CHRONIC OBSTRUCTIVE PULMONARY DISEASE
     Dosage: 4 DOSAGE/1 DAY

REACTIONS (4)
  - Pneumonia [Recovered/Resolved]
  - Pyrexia [Recovered/Resolved]
  - Dyspnoea [Recovered/Resolved]
  - Productive cough [Recovered/Resolved]
